FAERS Safety Report 8438741-1 (Version None)
Quarter: 2012Q2

REPORT INFORMATION
  Report Type: 
  Country: None (occurrence: None)
  Receive Date: 20120611
  Receipt Date: 20120611
  Transmission Date: 20120825
  Serious: No
  Sender: FDA-Public Use
  Company Number: None

PATIENT
  Sex: Male
  Weight: 297.2 kg

DRUGS (4)
  1. VANCOMYCIN [Suspect]
     Indication: PNEUMONIA
     Dosage: 1500 MG Q 12 HRS IV ; MG 2000 MG Q 12 HRS IV
     Route: 042
     Dates: start: 20120601, end: 20120601
  2. VANCOMYCIN [Suspect]
     Indication: CELLULITIS
     Dosage: 1500 MG Q 12 HRS IV ; MG 2000 MG Q 12 HRS IV
     Route: 042
     Dates: start: 20120601, end: 20120601
  3. VANCOMYCIN [Suspect]
     Indication: PNEUMONIA
     Dosage: 1500 MG Q 12 HRS IV ; MG 2000 MG Q 12 HRS IV
     Route: 042
     Dates: start: 20120526, end: 20120531
  4. VANCOMYCIN [Suspect]
     Indication: CELLULITIS
     Dosage: 1500 MG Q 12 HRS IV ; MG 2000 MG Q 12 HRS IV
     Route: 042
     Dates: start: 20120526, end: 20120531

REACTIONS (3)
  - BLOOD UREA INCREASED [None]
  - BLOOD CREATININE INCREASED [None]
  - DRUG LEVEL INCREASED [None]
